FAERS Safety Report 4917060-1 (Version None)
Quarter: 2006Q1

REPORT INFORMATION
  Report Type: 
  Country: None (occurrence: None)
  Receive Date: 20060214
  Receipt Date: 20060203
  Transmission Date: 20060701
  Serious: Yes (Other)
  Sender: FDA-Public Use
  Company Number: 200610501GDS

PATIENT
  Age: 81 Year
  Sex: Female

DRUGS (5)
  1. CIPRO [Suspect]
     Dosage: 250 MG, QD
  2. AMIODARONE [Concomitant]
  3. DIOVAN [Concomitant]
  4. LASIX [Concomitant]
  5. LEVOTHYROXINE SODIUM [Concomitant]

REACTIONS (2)
  - DIALYSIS [None]
  - RENAL FAILURE [None]
